FAERS Safety Report 10681428 (Version 2)
Quarter: 2015Q1

REPORT INFORMATION
  Report Type: Spontaneous
  Country: BE (occurrence: BE)
  Receive Date: 20141230
  Receipt Date: 20150311
  Transmission Date: 20150720
  Serious: Yes (Death, Other)
  Sender: FDA-Public Use
  Company Number: BE-AMGEN-BELSP2014100931

PATIENT
  Age: 78 Year
  Sex: Female

DRUGS (16)
  1. SERETIDE [Concomitant]
     Active Substance: FLUTICASONE FUROATE\SALMETEROL XINAFOATE
     Dosage: 25 MG, (1X2 PUFSS A DAY)
  2. MOVICOL [Concomitant]
     Active Substance: POLYETHYLENE GLYCOL 3350\POTASSIUM CHLORIDE\SODIUM BICARBONATE\SODIUM CHLORIDE
     Dosage: UNK, BID
  3. MAREVAN [Concomitant]
     Active Substance: WARFARIN SODIUM
     Dosage: 1/4 /DAY
  4. MYOCHOLINE [Concomitant]
     Active Substance: BETHANECHOL CHLORIDE
     Dosage: 10 MG, QD
  5. MOTILIUM [Concomitant]
     Active Substance: DOMPERIDONE
     Dosage: UNK, TID
  6. PROLIA [Suspect]
     Active Substance: DENOSUMAB
     Indication: OSTEOPOROSIS POSTMENOPAUSAL
     Dosage: 60 MG, Q6MO
     Route: 065
  7. CORUNO [Concomitant]
     Active Substance: MOLSIDOMINE
     Dosage: 16 MG, QD
  8. STEOVIT D3 [Concomitant]
     Dosage: UNK, QD
  9. DUROGESIC [Concomitant]
     Active Substance: FENTANYL
     Dosage: 50 MUG, 1 PATCH/3 DAY
  10. BURINEX [Concomitant]
     Active Substance: BUMETANIDE
     Dosage: 5 MG, UNK
  11. CORDARONE [Concomitant]
     Active Substance: AMIODARONE HYDROCHLORIDE
     Dosage: 200 MG, QD
  12. SPIRIVA [Concomitant]
     Active Substance: TIOTROPIUM BROMIDE MONOHYDRATE
     Dosage: 18 MUG, (1X1 PUFF A DAY)
  13. PANTOMED                           /00178901/ [Concomitant]
     Dosage: 40 MG, QD
  14. LORMETAZEPAM [Concomitant]
     Active Substance: LORMETAZEPAM
     Dosage: 1 MG, QD
  15. TAMSULOSINE [Concomitant]
     Active Substance: TAMSULOSIN HYDROCHLORIDE
     Dosage: 0.4 MG, QD
  16. DUOVENT [Concomitant]
     Active Substance: FENOTEROL HYDROBROMIDE
     Dosage: UNK, QID

REACTIONS (3)
  - Pulmonary oedema [Fatal]
  - Cardiac failure acute [Fatal]
  - Osteonecrosis of jaw [Unknown]

NARRATIVE: CASE EVENT DATE: 20120313
